FAERS Safety Report 8039076-1 (Version None)
Quarter: 2012Q1

REPORT INFORMATION
  Report Type: 
  Country: None (occurrence: None)
  Receive Date: 20120111
  Receipt Date: 20111212
  Transmission Date: 20120608
  Serious: No
  Sender: FDA-Public Use
  Company Number: US-AMGEN-USASP2011066172

PATIENT
  Age: 53 Year
  Sex: Female

DRUGS (1)
  1. ENBREL [Suspect]
     Indication: RHEUMATOID ARTHRITIS
     Dosage: 25 MG, 2 TIMES/WK
     Dates: start: 20000101

REACTIONS (10)
  - PAIN IN EXTREMITY [None]
  - SINUSITIS [None]
  - RETINAL TEAR [None]
  - MUSCLE SPASMS [None]
  - COUGH [None]
  - DRY EYE [None]
  - OCULAR HYPERAEMIA [None]
  - OEDEMA PERIPHERAL [None]
  - ARTHRALGIA [None]
  - GAIT DISTURBANCE [None]
